FAERS Safety Report 6314581-4 (Version None)
Quarter: 2009Q3

REPORT INFORMATION
  Report Type: 
  Country: None (occurrence: None)
  Receive Date: 20090818
  Receipt Date: 20090818
  Transmission Date: 20100115
  Serious: No
  Sender: FDA-Public Use
  Company Number: None

PATIENT
  Age: 49 Year
  Sex: Female

DRUGS (1)
  1. TAXOTERE [Suspect]
     Indication: BREAST CANCER METASTATIC
     Dosage: 160MG EVERY 3 WEEKS IV
     Route: 042
     Dates: start: 20090721

REACTIONS (3)
  - CHEST DISCOMFORT [None]
  - FLUSHING [None]
  - INFUSION RELATED REACTION [None]
